FAERS Safety Report 15201662 (Version 3)
Quarter: 2018Q4

REPORT INFORMATION
  Report Type: Spontaneous
  Country: US (occurrence: US)
  Receive Date: 20180726
  Receipt Date: 20181217
  Transmission Date: 20190204
  Serious: No
  Sender: FDA-Public Use
  Company Number: US-BIOGEN-2018BI00600673

PATIENT
  Age: 31 Year
  Sex: Female

DRUGS (2)
  1. TECFIDERA [Suspect]
     Active Substance: DIMETHYL FUMARATE
     Route: 048
     Dates: start: 20180622
  2. TECFIDERA [Suspect]
     Active Substance: DIMETHYL FUMARATE
     Indication: MULTIPLE SCLEROSIS
     Dosage: STARTING DOSE
     Route: 048
     Dates: start: 20180622

REACTIONS (15)
  - Anxiety [Unknown]
  - Feeling hot [Recovered/Resolved]
  - Muscular weakness [Unknown]
  - Nausea [Unknown]
  - Product dose omission [Unknown]
  - Anaemia [Not Recovered/Not Resolved]
  - Ocular discomfort [Unknown]
  - Hyperhidrosis [Unknown]
  - Abdominal discomfort [Recovered/Resolved]
  - Abdominal pain upper [Unknown]
  - Fatigue [Unknown]
  - Headache [Recovered/Resolved]
  - Multiple sclerosis [Unknown]
  - Musculoskeletal stiffness [Unknown]
  - Flushing [Recovered/Resolved]

NARRATIVE: CASE EVENT DATE: 201810
